FAERS Safety Report 20017010 (Version 1)
Quarter: 2021Q4

REPORT INFORMATION
  Report Type: Spontaneous
  Country: None (occurrence: US)
  Receive Date: 20211030
  Receipt Date: 20211030
  Transmission Date: 20220303
  Serious: No
  Sender: FDA-Public Use
  Company Number: US-The ACME Laboratories Ltd-2121198

PATIENT
  Sex: Female

DRUGS (1)
  1. ZOLPIDEM TARTRATE [Suspect]
     Active Substance: ZOLPIDEM TARTRATE
     Indication: Product used for unknown indication
     Route: 065

REACTIONS (2)
  - Wrong technique in product usage process [Recovered/Resolved with Sequelae]
  - Product physical issue [Unknown]
